FAERS Safety Report 7329515-3 (Version None)
Quarter: 2011Q1

REPORT INFORMATION
  Report Type: 
  Country: None (occurrence: None)
  Receive Date: 20110303
  Receipt Date: 20110224
  Transmission Date: 20110831
  Serious: Yes (Death, Other)
  Sender: FDA-Public Use
  Company Number: PHFR2011GB01458

PATIENT
  Sex: Male

DRUGS (4)
  1. TEGRETOL [Suspect]
     Indication: PAIN
     Dosage: 100 MG, UNK
     Route: 048
  2. TEGRETOL [Suspect]
     Dosage: 400 MG, UNK
     Route: 048
  3. CO-CODAMOL [Suspect]
     Dosage: UNK DF, UNK
  4. TEGRETOL [Suspect]
     Dosage: 200 MG, UNK
     Route: 048

REACTIONS (3)
  - CEREBRAL HAEMORRHAGE [None]
  - POISONING [None]
  - HYPERSENSITIVITY [None]
